FAERS Safety Report 11317577 (Version 1)
Quarter: 2015Q3

REPORT INFORMATION
  Report Type: Spontaneous
  Country: US (occurrence: US)
  Receive Date: 20150728
  Receipt Date: 20150728
  Transmission Date: 20151125
  Serious: No
  Sender: FDA-Public Use
  Company Number: US-AMGEN-USASP2015072488

PATIENT
  Age: 52 Year
  Sex: Male

DRUGS (5)
  1. ENBREL [Suspect]
     Active Substance: ETANERCEPT
     Indication: ANKYLOSING SPONDYLITIS
     Dosage: UNK UNK, QWK
     Route: 065
     Dates: start: 20150706
  2. PYRIDOXINE [Concomitant]
     Active Substance: PYRIDOXINE
     Dosage: 50 MG, UNK
  3. METOPROLOL [Concomitant]
     Active Substance: METOPROLOL
     Dosage: UNK
  4. ISONIAZIDE [Concomitant]
     Active Substance: ISONIAZID
     Dosage: 300 MG, UNK
  5. SIMVASTATIN. [Concomitant]
     Active Substance: SIMVASTATIN
     Dosage: UNK

REACTIONS (2)
  - Contusion [Unknown]
  - Myalgia [Unknown]

NARRATIVE: CASE EVENT DATE: 201507
